FAERS Safety Report 5209733-0 (Version None)
Quarter: 2007Q1

REPORT INFORMATION
  Report Type: 
  Country: None (occurrence: None)
  Receive Date: 20070111
  Receipt Date: 20061227
  Transmission Date: 20070707
  Serious: Yes (Death, Life-Threatening, Hospitalization)
  Sender: FDA-Public Use
  Company Number: 2006SP008711

PATIENT
  Age: 48 Year
  Sex: Male
  Weight: 72 kg

DRUGS (4)
  1. POSACONAZOLE [Suspect]
     Indication: PROPHYLAXIS
     Dosage: 400 MG; IV;  300 MG; IV;  400 MG; IV-SEE IMAGE
     Route: 042
     Dates: start: 20061208, end: 20061208
  2. POSACONAZOLE [Suspect]
     Indication: PROPHYLAXIS
     Dosage: 400 MG; IV;  300 MG; IV;  400 MG; IV-SEE IMAGE
     Route: 042
     Dates: start: 20061209, end: 20061221
  3. POSACONAZOLE [Suspect]
     Indication: PROPHYLAXIS
     Dosage: 400 MG; IV;  300 MG; IV;  400 MG; IV-SEE IMAGE
     Route: 042
     Dates: start: 20061222, end: 20061223
  4. POSACONAZOLE [Suspect]

REACTIONS (5)
  - GENERAL PHYSICAL HEALTH DETERIORATION [None]
  - HAEMATOCRIT DECREASED [None]
  - HAEMOGLOBIN DECREASED [None]
  - MULTI-ORGAN FAILURE [None]
  - PNEUMONIA [None]
